FAERS Safety Report 23323442 (Version 2)
Quarter: 2023Q4

REPORT INFORMATION
  Report Type: Report from Study
  Country: JP (occurrence: JP)
  Receive Date: 20231220
  Receipt Date: 20231225
  Transmission Date: 20240109
  Serious: Yes (Death)
  Sender: FDA-Public Use
  Company Number: JP-ABBVIE-5548218

PATIENT
  Age: 92 Year
  Sex: Female

DRUGS (5)
  1. RINVOQ [Suspect]
     Active Substance: UPADACITINIB
     Indication: Rheumatoid arthritis
     Dosage: TIME INTERVAL: 0.33333333 WEEKS: FORM STRENGTH: 7.5 MILLIGRAM
     Route: 048
     Dates: start: 20210526, end: 20220517
  2. ELDECALCITOL [Concomitant]
     Active Substance: ELDECALCITOL
     Indication: Osteoporosis
     Dosage: 0.5 MICROGRAM
  3. PREDNISOLONE [Concomitant]
     Active Substance: PREDNISOLONE
     Indication: Rheumatoid arthritis
     Dosage: 10 MILLIGRAM
  4. ESOMEPRAZOLE MAGNESIUM [Concomitant]
     Active Substance: ESOMEPRAZOLE MAGNESIUM
     Indication: Prophylaxis
     Dosage: 10 MG/WEEK
  5. LOXOPROFEN SODIUM DIHYDRATE [Concomitant]
     Active Substance: LOXOPROFEN SODIUM DIHYDRATE
     Indication: Rheumatoid arthritis
     Dosage: 120 MILLIGRAM

REACTIONS (3)
  - Oedema peripheral [Fatal]
  - Skin ulcer [Fatal]
  - Cardiac failure chronic [Fatal]

NARRATIVE: CASE EVENT DATE: 20220517
